FAERS Safety Report 8063467-6 (Version None)
Quarter: 2012Q1

REPORT INFORMATION
  Report Type: 
  Country: None (occurrence: None)
  Receive Date: 20120123
  Receipt Date: 20120112
  Transmission Date: 20120608
  Serious: Yes (Hospitalization, Other)
  Sender: FDA-Public Use
  Company Number: PHHY2011FR110079

PATIENT
  Sex: Male

DRUGS (2)
  1. PREVISCAN [Concomitant]
     Indication: AORTIC VALVE DISEASE
     Dosage: UNK
     Dates: start: 20050101
  2. AFINITOR [Suspect]
     Indication: RENAL CANCER
     Dosage: 10 MG, DAILY
     Dates: start: 20110107, end: 20111116

REACTIONS (3)
  - SQUAMOUS CELL CARCINOMA [None]
  - CONCOMITANT DISEASE PROGRESSION [None]
  - ACTINIC KERATOSIS [None]
